FAERS Safety Report 16679017 (Version 2)
Quarter: 2021Q3

REPORT INFORMATION
  Report Type: Spontaneous
  Country: US (occurrence: US)
  Receive Date: 20190807
  Receipt Date: 20210709
  Transmission Date: 20211014
  Serious: No
  Sender: FDA-Public Use
  Company Number: US-SA-2019SA210123

PATIENT
  Age: 58 Year
  Sex: Female

DRUGS (2)
  1. TOUJEO [Suspect]
     Active Substance: INSULIN GLARGINE
     Dosage: Q12H (35 UNITS 40 UNITS IN MORNING ABD NIGHT)
     Route: 065
  2. TOUJEO [Suspect]
     Active Substance: INSULIN GLARGINE
     Indication: TYPE 2 DIABETES MELLITUS
     Dosage: 80 U, QD 5 UNITS IN THE AM AND 75 UNITS AT NIGHT.
     Route: 065
     Dates: start: 20180103

REACTIONS (1)
  - Inappropriate schedule of product administration [Unknown]
